FAERS Safety Report 23677478 (Version 2)
Quarter: 2025Q2

REPORT INFORMATION
  Report Type: Spontaneous
  Country: US (occurrence: US)
  Receive Date: 20240327
  Receipt Date: 20250403
  Transmission Date: 20250717
  Serious: No
  Sender: GALPHARM INTERNATIONAL
  Company Number: US-PERRIGO-24US001375

PATIENT
  Age: 64 Year
  Sex: Male
  Weight: 79.365 kg

DRUGS (7)
  1. FEXOFENADINE HYDROCHLORIDE [Suspect]
     Active Substance: FEXOFENADINE HYDROCHLORIDE
     Indication: Mast cell activation syndrome
     Dosage: 180 MG, TID
     Route: 048
     Dates: start: 202306, end: 202306
  2. FEXOFENADINE HYDROCHLORIDE [Suspect]
     Active Substance: FEXOFENADINE HYDROCHLORIDE
     Route: 048
     Dates: start: 20240204, end: 20240204
  3. FEXOFENADINE HYDROCHLORIDE [Suspect]
     Active Substance: FEXOFENADINE HYDROCHLORIDE
     Route: 048
     Dates: start: 20240205, end: 20240205
  4. FEXOFENADINE HYDROCHLORIDE [Suspect]
     Active Substance: FEXOFENADINE HYDROCHLORIDE
     Route: 048
     Dates: start: 20240205, end: 20240205
  5. CROMOLYN SODIUM [Concomitant]
     Active Substance: CROMOLYN SODIUM
     Indication: Mast cell activation syndrome
     Dosage: 300 MG, QID
     Route: 065
     Dates: start: 2022
  6. ZYRTEC [Concomitant]
     Active Substance: CETIRIZINE HYDROCHLORIDE
     Indication: Mast cell activation syndrome
     Route: 065
     Dates: start: 2022
  7. MONTELUKAST [Concomitant]
     Active Substance: MONTELUKAST
     Indication: Mast cell activation syndrome
     Route: 065
     Dates: start: 2020

REACTIONS (8)
  - Asthma [Recovered/Resolved]
  - Dyspnoea [Recovered/Resolved]
  - Pulmonary function test decreased [Recovered/Resolved]
  - Fatigue [Recovered/Resolved]
  - Brain fog [Recovered/Resolved]
  - Therapeutic response decreased [Unknown]
  - Drug ineffective for unapproved indication [Unknown]
  - Overdose [Unknown]

NARRATIVE: CASE EVENT DATE: 20230601
